FAERS Safety Report 24225584 (Version 3)
Quarter: 2024Q3

REPORT INFORMATION
  Report Type: Spontaneous
  Country: GB (occurrence: GB)
  Receive Date: 20240820
  Receipt Date: 20240918
  Transmission Date: 20241016
  Serious: Yes (Life-Threatening, Hospitalization, Other)
  Sender: EXELIXIS
  Company Number: GB-IPSEN Group, Research and Development-2024-16122

PATIENT
  Age: 17 Year
  Sex: Female
  Weight: 49 kg

DRUGS (4)
  1. CABOMETYX [Suspect]
     Active Substance: CABOZANTINIB S-MALATE
     Indication: Osteosarcoma metastatic
     Dosage: 60 MG, QD
     Route: 048
     Dates: start: 20240503, end: 20240710
  2. CABOMETYX [Suspect]
     Active Substance: CABOZANTINIB S-MALATE
     Indication: Off label use
  3. DESOGESTREL [Concomitant]
     Active Substance: DESOGESTREL
     Indication: Vaginal haemorrhage
     Dosage: 150 UG
     Route: 048
     Dates: start: 20240515
  4. LEVOTHYROXINE [Concomitant]
     Active Substance: LEVOTHYROXINE\LEVOTHYROXINE SODIUM
     Indication: Hypothyroidism
     Dosage: 50 UG
     Route: 048
     Dates: start: 20240627

REACTIONS (3)
  - Pneumothorax [Not Recovered/Not Resolved]
  - Malignant neoplasm progression [Unknown]
  - Off label use [Unknown]

NARRATIVE: CASE EVENT DATE: 20240708
